FAERS Safety Report 8504738-6 (Version None)
Quarter: 2012Q3

REPORT INFORMATION
  Report Type: 
  Country: None (occurrence: None)
  Receive Date: 20120712
  Receipt Date: 20120629
  Transmission Date: 20120928
  Serious: Yes (Death)
  Sender: FDA-Public Use
  Company Number: US-BRISTOL-MYERS SQUIBB COMPANY-16280653

PATIENT
  Age: 74 Year
  Sex: Female
  Weight: 95 kg

DRUGS (14)
  1. CELEBREX [Concomitant]
  2. METOPROLOL TARTRATE [Concomitant]
  3. HYDROCHLOROTHIAZIDE [Concomitant]
  4. VIGAMOX [Concomitant]
  5. ORENCIA [Suspect]
     Indication: RHEUMATOID ARTHRITIS
     Dosage: LOT NO: 1193033/1H57926 FORM: ORENCIA/DISPOSABLE SYRING LYO-INJ 250MG VIAL.
     Route: 042
     Dates: start: 20111208, end: 20111208
  6. PREDNISONE [Concomitant]
  7. DETROL LA [Concomitant]
     Dosage: DAILY
  8. BUMETANIDE [Concomitant]
  9. LEUCOVORIN CALCIUM [Concomitant]
     Dosage: 2 Q SATURDAY
  10. METHOTREXATE [Concomitant]
     Dosage: 3 TID ON FRIDAY
  11. EYE DROPS [Concomitant]
     Route: 047
  12. KLOR-CON [Concomitant]
  13. AMOXICILLIN [Concomitant]
     Dosage: PRIOR TO DENTAL WORK
  14. LEVOTHYROXINE SODIUM [Concomitant]

REACTIONS (2)
  - GRAND MAL CONVULSION [None]
  - ANAPHYLACTIC REACTION [None]
